FAERS Safety Report 15361281 (Version 2)
Quarter: 2018Q3

REPORT INFORMATION
  Report Type: Spontaneous
  Country: FR (occurrence: FR)
  Receive Date: 20180907
  Receipt Date: 20180926
  Transmission Date: 20181010
  Serious: Yes (Death, Other)
  Sender: FDA-Public Use
  Company Number: FR-MYLANLABS-2018M1065826

PATIENT

DRUGS (29)
  1. PREDNISONE. [Suspect]
     Active Substance: PREDNISONE
     Dosage: UNK UNK, CYCLE
     Route: 065
  2. PREDNISONE. [Suspect]
     Active Substance: PREDNISONE
     Dosage: UNK UNK, CYCLE, DAY 1 TO DAY 4, CYCLE 4
     Route: 065
  3. ENDOXAN                            /00021101/ [Suspect]
     Active Substance: CYCLOPHOSPHAMIDE
     Indication: NON-HODGKIN^S LYMPHOMA
     Dosage: 6000 MG/M2 HIGH DOSE CYCLE 1 AT DAY 1
     Route: 065
  4. DOXORUBICIN [Suspect]
     Active Substance: DOXORUBICIN
     Dosage: DAY 1, CYCLE 4
     Route: 065
  5. CIPROFLOXACIN. [Concomitant]
     Active Substance: CIPROFLOXACIN
     Indication: PROPHYLAXIS
     Dosage: 1500 MG, QD
     Route: 048
  6. ENDOXAN                            /00021101/ [Suspect]
     Active Substance: CYCLOPHOSPHAMIDE
     Dosage: 500 MG/M2, QD, DAY 1
     Route: 065
  7. VINCRISTINE [Suspect]
     Active Substance: VINCRISTINE
     Dosage: 2 MG, CYCLE, DAY 1, CYCLE 3
     Route: 065
  8. PREDNISONE. [Suspect]
     Active Substance: PREDNISONE
     Dosage: UNK UNK, CYCLE, DAY 1 TO DAY 4, CYCLE 1
     Route: 065
  9. DOXORUBICIN [Suspect]
     Active Substance: DOXORUBICIN
     Dosage: DAY 1, CYCLE 2
     Route: 065
  10. VINCRISTINE [Suspect]
     Active Substance: VINCRISTINE
     Indication: NON-HODGKIN^S LYMPHOMA
     Dosage: 2 MG, CYCLE, DAY 1, CYCLE 4
     Route: 065
  11. VINCRISTINE [Suspect]
     Active Substance: VINCRISTINE
     Dosage: 2 MG, CYCLE,DAY 1, CYCLE 2
     Route: 065
  12. PREDNISONE. [Suspect]
     Active Substance: PREDNISONE
     Dosage: UNK UNK, CYCLE, DAY 1 TO DAY 4, CYCLE 3
     Route: 065
  13. DOXORUBICIN [Suspect]
     Active Substance: DOXORUBICIN
     Indication: NON-HODGKIN^S LYMPHOMA
     Dosage: 75 MG/M2, CYCLE, DAY 1, CYCLE 1
     Route: 065
  14. CIPROFLOXACIN. [Concomitant]
     Active Substance: CIPROFLOXACIN
     Dosage: 1500 MG, UNK
     Route: 048
  15. PREDNISONE. [Suspect]
     Active Substance: PREDNISONE
     Dosage: UNK UNK, CYCLE, DAY 1 TO DAY 4, CYCLE 2
     Route: 065
  16. CISPLATIN. [Suspect]
     Active Substance: CISPLATIN
     Indication: NON-HODGKIN^S LYMPHOMA
     Dosage: DAY 1
     Route: 065
  17. ENDOXAN                            /00021101/ [Suspect]
     Active Substance: CYCLOPHOSPHAMIDE
     Dosage: 4000 MG/M2, CYCLE, CYCLE 2 AT DAY 1
     Route: 065
  18. UROMITEXAN [Suspect]
     Active Substance: MESNA
     Indication: NON-HODGKIN^S LYMPHOMA
     Dosage: MESNA WAS INFUSED BEFORE, AND 4 HOURS AND 8 H AFTER EACH CYCLOPHOSPHAMIDE INFUSION, WITH A TOTAL DOS
     Route: 065
  19. FILGRASTIM [Concomitant]
     Active Substance: FILGRASTIM
     Indication: PRODUCT USED FOR UNKNOWN INDICATION
     Dosage: STARTED AT DAY 6 FOR MINIMUM OF 7 DAYS
     Route: 058
  20. METHOTREXATE. [Concomitant]
     Active Substance: METHOTREXATE
     Indication: PROPHYLAXIS
     Dosage: PATIENT RECEIVED C1 AND C2 IN OUTPATIENT SETTING AND C3 AND C4 IN HOSPITAL. THE PATIENT HAD TO BE HO
     Route: 037
  21. PREDNISONE. [Suspect]
     Active Substance: PREDNISONE
     Indication: NON-HODGKIN^S LYMPHOMA
     Dosage: UNK UNK, CYCLE, DAY 1 TO DAY 4
     Route: 065
  22. ETOPOSIDE. [Suspect]
     Active Substance: ETOPOSIDE
     Indication: NON-HODGKIN^S LYMPHOMA
     Dosage: 250 MG/M2, QD, DAY 1 AND DAY 2
     Route: 065
  23. DOXORUBICIN [Suspect]
     Active Substance: DOXORUBICIN
     Dosage: DAY 1, CYCLE 3
     Route: 065
  24. ENDOXAN                            /00021101/ [Suspect]
     Active Substance: CYCLOPHOSPHAMIDE
     Dosage: 4000 MG/M2, CYCLE, CYCLE 4 AT DAY 1
     Route: 065
  25. ENDOXAN                            /00021101/ [Suspect]
     Active Substance: CYCLOPHOSPHAMIDE
     Dosage: 4000 MG/M2, CYCLE, CYCLE 3 AT DAY 1
     Route: 065
  26. PENICILLIN G                       /00000901/ [Concomitant]
     Active Substance: PENICILLIN G
     Indication: PROPHYLAXIS
     Dosage: 1 * 10^6 TWICE DAILY
     Route: 048
  27. PREDNISONE. [Suspect]
     Active Substance: PREDNISONE
     Dosage: UNK UNK, CYCLE
     Route: 065
  28. VINCRISTINE [Suspect]
     Active Substance: VINCRISTINE
     Dosage: 2 MG, CYCLE, DAY 1, CYCLE 1
     Route: 065
  29. VINCRISTINE [Suspect]
     Active Substance: VINCRISTINE
     Dosage: 2 MG, QD  DAY 1
     Route: 065

REACTIONS (3)
  - Acute respiratory distress syndrome [Fatal]
  - Interstitial lung disease [Fatal]
  - Pyrexia [Fatal]
